FAERS Safety Report 4574459-3 (Version None)
Quarter: 2005Q1

REPORT INFORMATION
  Report Type: 
  Country: None (occurrence: None)
  Receive Date: 20050204
  Receipt Date: 20050125
  Transmission Date: 20050727
  Serious: Yes (Other)
  Sender: FDA-Public Use
  Company Number: 2005019617

PATIENT
  Sex: Male
  Weight: 81.6475 kg

DRUGS (1)
  1. PHENYTOIN [Suspect]
     Indication: CONVULSION
     Dosage: 400 MG (100 MG, 1 IN 1 D)
     Dates: start: 19800101

REACTIONS (4)
  - ANTICONVULSANT DRUG LEVEL DECREASED [None]
  - GRAND MAL CONVULSION [None]
  - HEADACHE [None]
  - VOMITING [None]
